FAERS Safety Report 8583815-8 (Version None)
Quarter: 2012Q3

REPORT INFORMATION
  Report Type: 
  Country: None (occurrence: None)
  Receive Date: 20120810
  Receipt Date: 20120808
  Transmission Date: 20120928
  Serious: Yes (Hospitalization)
  Sender: FDA-Public Use
  Company Number: NL-AMGEN-NLDSP2012049473

PATIENT
  Age: 52 Year
  Sex: Female

DRUGS (9)
  1. PANADOL                            /00020001/ [Concomitant]
  2. CALCI CHEW D3 [Concomitant]
     Dosage: UNK
  3. XGEVA [Suspect]
     Dosage: 120 MG, Q4WK
     Route: 058
     Dates: start: 20120223
  4. DICLOFENAC [Concomitant]
  5. VENLAFAXINE [Concomitant]
  6. PANTOPRAZOLE [Concomitant]
  7. FRAXODI [Concomitant]
  8. OXYCONTIN [Concomitant]
  9. TEMAZEPAM [Concomitant]

REACTIONS (1)
  - INTERNAL FIXATION OF FRACTURE [None]
